FAERS Safety Report 9411782 (Version 2)
Quarter: 2013Q3

REPORT INFORMATION
  Report Type: Spontaneous
  Country: US (occurrence: US)
  Receive Date: 20130722
  Receipt Date: 20130725
  Transmission Date: 20140515
  Serious: No
  Sender: FDA-Public Use
  Company Number: US-PFIZER INC-2013213399

PATIENT
  Age: 37 Year
  Sex: Female
  Weight: 107 kg

DRUGS (3)
  1. CHANTIX [Suspect]
     Indication: SMOKING CESSATION THERAPY
     Dosage: UNK
     Dates: start: 2010
  2. CHANTIX [Suspect]
     Dosage: 0.5 MG DAILY
     Dates: start: 201307, end: 201307
  3. CHANTIX [Suspect]
     Dosage: UNK
     Dates: start: 201307

REACTIONS (1)
  - Neck pain [Not Recovered/Not Resolved]
